FAERS Safety Report 21004300 (Version 1)
Quarter: 2022Q2

REPORT INFORMATION
  Report Type: Spontaneous
  Country: CN (occurrence: None)
  Receive Date: 20220624
  Receipt Date: 20220624
  Transmission Date: 20220721
  Serious: Yes (Other)
  Sender: FDA-Public Use
  Company Number: 2022A228292

PATIENT
  Age: 9862 Day
  Sex: Male

DRUGS (4)
  1. BUDESONIDE [Suspect]
     Active Substance: BUDESONIDE
     Indication: Chest discomfort
     Route: 055
     Dates: start: 20220520, end: 20220520
  2. BUDESONIDE [Suspect]
     Active Substance: BUDESONIDE
     Indication: Dyspnoea
     Route: 055
     Dates: start: 20220520, end: 20220520
  3. ALBUTEROL SULFATE [Concomitant]
     Active Substance: ALBUTEROL SULFATE
     Indication: Chest discomfort
     Route: 055
  4. ALBUTEROL SULFATE [Concomitant]
     Active Substance: ALBUTEROL SULFATE
     Indication: Dyspnoea
     Route: 055

REACTIONS (7)
  - Oxygen saturation decreased [Unknown]
  - Blood pressure increased [Unknown]
  - Heart rate increased [Unknown]
  - Chest discomfort [Recovering/Resolving]
  - Dyspnoea [Recovering/Resolving]
  - Cyanosis [Recovering/Resolving]
  - Hyperhidrosis [Unknown]

NARRATIVE: CASE EVENT DATE: 20220520
